FAERS Safety Report 16354564 (Version 1)
Quarter: 2019Q2

REPORT INFORMATION
  Report Type: Spontaneous
  Country: US (occurrence: US)
  Receive Date: 20190524
  Receipt Date: 20190524
  Transmission Date: 20190711
  Serious: No
  Sender: FDA-Public Use
  Company Number: US-MYLANLABS-2019M1041094

PATIENT
  Sex: Female

DRUGS (3)
  1. SOMA [Suspect]
     Active Substance: CARISOPRODOL
     Indication: MUSCLE SPASMS
  2. SOMA [Suspect]
     Active Substance: CARISOPRODOL
     Indication: MUSCLE TIGHTNESS
  3. SOMA [Suspect]
     Active Substance: CARISOPRODOL
     Indication: BACK PAIN
     Dosage: 300 MILLIGRAM, PRN (TAKES IT AS NEEDED, BY MOUTH FOUR TIMES A DAY)
     Route: 048

REACTIONS (1)
  - Back pain [Unknown]
